FAERS Safety Report 19918221 (Version 1)
Quarter: 2021Q4

REPORT INFORMATION
  Report Type: Spontaneous
  Country: US (occurrence: US)
  Receive Date: 20211005
  Receipt Date: 20211005
  Transmission Date: 20220304
  Serious: Yes (Other)
  Sender: FDA-Public Use
  Company Number: None

PATIENT
  Age: 60 Year
  Sex: Female
  Weight: 60 kg

DRUGS (1)
  1. HYDROXYCHLOROQUINE [Suspect]
     Active Substance: HYDROXYCHLOROQUINE
     Indication: Arthritis
     Route: 048
     Dates: start: 20210306, end: 20210322

REACTIONS (2)
  - Rash pruritic [None]
  - Rash [None]

NARRATIVE: CASE EVENT DATE: 20210306
